FAERS Safety Report 12491061 (Version 2)
Quarter: 2016Q3

REPORT INFORMATION
  Report Type: Spontaneous
  Country: DE (occurrence: DE)
  Receive Date: 20160623
  Receipt Date: 20160704
  Transmission Date: 20161109
  Serious: Yes (Other)
  Sender: FDA-Public Use
  Company Number: DE-009507513-1606DEU008095

PATIENT
  Age: 40 Year
  Sex: Female
  Weight: 57 kg

DRUGS (5)
  1. PUREGON [Suspect]
     Active Substance: FOLLITROPIN
     Dosage: 225 IU, QD (STRENGTH 300IE/0.36ML)
     Route: 058
     Dates: start: 201307, end: 201307
  2. MENOGON [Suspect]
     Active Substance: MENOTROPINS
     Indication: OVULATION INDUCTION
     Dosage: 225 IU, QD
     Route: 058
     Dates: start: 201307, end: 201307
  3. MENOGON [Suspect]
     Active Substance: MENOTROPINS
     Dosage: 225 IU, QD
     Route: 058
     Dates: start: 201507, end: 201507
  4. PUREGON [Suspect]
     Active Substance: FOLLITROPIN
     Indication: OVULATION INDUCTION
     Dosage: 225 IU, QD (STRENGTH 300IE/0.36ML)
     Route: 058
     Dates: start: 201307, end: 201307
  5. FOLIO [Concomitant]
     Active Substance: FOLIC ACID
     Indication: NUTRITIONAL SUPPLEMENTATION
     Dosage: UNK
     Route: 048
     Dates: start: 201307

REACTIONS (2)
  - Dysplastic naevus [Recovered/Resolved]
  - Dysplastic naevus [Recovered/Resolved]

NARRATIVE: CASE EVENT DATE: 201402
